FAERS Safety Report 22729865 (Version 4)
Quarter: 2024Q1

REPORT INFORMATION
  Report Type: Spontaneous
  Country: US (occurrence: US)
  Receive Date: 20230720
  Receipt Date: 20240130
  Transmission Date: 20240410
  Serious: No
  Sender: FDA-Public Use
  Company Number: US-BRISTOL-MYERS SQUIBB COMPANY-2023-102108

PATIENT
  Age: 75 Year
  Sex: Female
  Weight: 64.86 kg

DRUGS (1)
  1. POMALYST [Suspect]
     Active Substance: POMALIDOMIDE
     Indication: Plasma cell myeloma
     Dosage: FREQUENCY: 1CDFOR21D.?FREQUENCY: DAILY FOR 21DAYS.
     Route: 048
     Dates: start: 20220401

REACTIONS (5)
  - Synovial cyst [Unknown]
  - Dyspepsia [Unknown]
  - Headache [Unknown]
  - Memory impairment [Unknown]
  - Disturbance in attention [Unknown]
